FAERS Safety Report 5049266-8 (Version None)
Quarter: 2006Q3

REPORT INFORMATION
  Report Type: 
  Country: None (occurrence: None)
  Receive Date: 20060707
  Receipt Date: 20060622
  Transmission Date: 20061208
  Serious: No
  Sender: FDA-Public Use
  Company Number: 35459

PATIENT
  Age: 42 Year
  Sex: Female

DRUGS (3)
  1. NEVANAC [Suspect]
     Indication: PROPHYLAXIS
     Dosage: 1 GTT OS BID OPHT
     Route: 047
     Dates: start: 20060222, end: 20060222
  2. VIGAMOX [Concomitant]
  3. FLAREX [Concomitant]

REACTIONS (4)
  - EYE INFLAMMATION [None]
  - EYE PAIN [None]
  - OCCUPATIONAL PROBLEM ENVIRONMENTAL [None]
  - OCULAR HYPERAEMIA [None]
